FAERS Safety Report 18048174 (Version 2)
Quarter: 2021Q2

REPORT INFORMATION
  Report Type: Spontaneous
  Country: US (occurrence: US)
  Receive Date: 20200721
  Receipt Date: 20210406
  Transmission Date: 20210717
  Serious: Yes (Other)
  Sender: FDA-Public Use
  Company Number: US-GLAXOSMITHKLINE-US2020136930

PATIENT
  Sex: Male

DRUGS (5)
  1. ZANTAC [Suspect]
     Active Substance: RANITIDINE HYDROCHLORIDE
     Dates: start: 19940515, end: 20100515
  2. RANITIDINE. [Suspect]
     Active Substance: RANITIDINE
     Indication: ANTIINFLAMMATORY THERAPY
     Dosage: 300 MG, QD
     Route: 065
     Dates: start: 199405, end: 201005
  3. ZANTAC [Suspect]
     Active Substance: RANITIDINE HYDROCHLORIDE
     Indication: ANTIINFLAMMATORY THERAPY
     Dosage: 300 MG, QD
     Route: 065
     Dates: start: 199405, end: 201005
  4. ZANTAC [Suspect]
     Active Substance: RANITIDINE HYDROCHLORIDE
     Indication: ANTIINFLAMMATORY THERAPY
     Dosage: 300 MG, QD
     Route: 065
     Dates: start: 199405, end: 201005
  5. RANITIDINE. [Suspect]
     Active Substance: RANITIDINE
     Indication: ANTIINFLAMMATORY THERAPY
     Dosage: 300 MG, QD
     Route: 065
     Dates: start: 199405, end: 201005

REACTIONS (3)
  - Laryngeal cancer [Unknown]
  - Oesophageal carcinoma [Unknown]
  - Laryngeal stenosis [Unknown]
